FAERS Safety Report 17630209 (Version 1)
Quarter: 2020Q2

REPORT INFORMATION
  Report Type: Spontaneous
  Country: US (occurrence: US)
  Receive Date: 20200402
  Receipt Date: 20200402
  Transmission Date: 20200713
  Serious: Yes (Hospitalization)
  Sender: FDA-Public Use
  Company Number: None

PATIENT
  Age: 55 Year
  Sex: Male
  Weight: 126 kg

DRUGS (1)
  1. CORDARONE [Suspect]
     Active Substance: AMIODARONE HYDROCHLORIDE
     Indication: ATRIAL FIBRILLATION
     Route: 048
     Dates: start: 20130918, end: 20191202

REACTIONS (7)
  - Respiratory depression [None]
  - Ventricular tachyarrhythmia [None]
  - Dyspnoea [None]
  - Respiratory failure [None]
  - Pulmonary oedema [None]
  - Malaise [None]
  - Toxicity to various agents [None]

NARRATIVE: CASE EVENT DATE: 20191202
